FAERS Safety Report 20172253 (Version 1)
Quarter: 2021Q4

REPORT INFORMATION
  Report Type: Spontaneous
  Country: US (occurrence: US)
  Receive Date: 20211210
  Receipt Date: 20211210
  Transmission Date: 20220303
  Serious: Yes (Other)
  Sender: FDA-Public Use
  Company Number: US-NOVOPROD-833806

PATIENT
  Sex: Female

DRUGS (3)
  1. LEVEMIR [Suspect]
     Active Substance: INSULIN DETEMIR
     Indication: Diabetes mellitus
     Dosage: 25 IU, QD (AT NIGHT)
     Route: 058
     Dates: start: 2019
  2. LEVEMIR [Suspect]
     Active Substance: INSULIN DETEMIR
     Dosage: 40 IU, QD (AT NIGHT)
     Route: 058
     Dates: start: 2019
  3. INSULIN NOS [Concomitant]
     Active Substance: INSULIN NOS
     Indication: Diabetes mellitus
     Dosage: DAYTIME
     Route: 065

REACTIONS (5)
  - Blood glucose increased [Recovered/Resolved]
  - Weight increased [Unknown]
  - Glycosylated haemoglobin increased [Recovering/Resolving]
  - Product communication issue [Unknown]
  - Product storage error [Unknown]

NARRATIVE: CASE EVENT DATE: 20210101
